FAERS Safety Report 9961279 (Version 2)
Quarter: 2014Q2

REPORT INFORMATION
  Report Type: Spontaneous
  Country: US (occurrence: US)
  Receive Date: 20140305
  Receipt Date: 20140430
  Transmission Date: 20141212
  Serious: Yes (Disabling)
  Sender: FDA-Public Use
  Company Number: US-SA-2014SA026646

PATIENT
  Age: 70 Year
  Sex: Male
  Weight: 102.5 kg

DRUGS (8)
  1. ELIGARD [Suspect]
     Indication: PROSTATE CANCER
     Dosage: THERAPY END DATE:NOV-13
     Route: 065
     Dates: start: 20131121
  2. ELIGARD [Suspect]
     Indication: PROSTATE CANCER
     Route: 065
     Dates: start: 20131223
  3. ALBUTEROL SULFATE [Concomitant]
  4. AZELASTINE HYDROCHLORIDE [Concomitant]
  5. FLONASE [Concomitant]
  6. LORATADINE [Concomitant]
  7. GUAIFENESIN [Concomitant]
  8. PREDNISONE [Concomitant]

REACTIONS (8)
  - Gait disturbance [Not Recovered/Not Resolved]
  - Peripheral swelling [Not Recovered/Not Resolved]
  - Muscular weakness [Not Recovered/Not Resolved]
  - Walking aid user [Not Recovered/Not Resolved]
  - Eosinophil count increased [Not Recovered/Not Resolved]
  - White blood cell count increased [Not Recovered/Not Resolved]
  - Oedema peripheral [Not Recovered/Not Resolved]
  - Pain in extremity [Not Recovered/Not Resolved]
